FAERS Safety Report 7391572-6 (Version None)
Quarter: 2011Q2

REPORT INFORMATION
  Report Type: 
  Country: None (occurrence: None)
  Receive Date: 20110404
  Receipt Date: 20110322
  Transmission Date: 20111010
  Serious: Yes (Hospitalization)
  Sender: FDA-Public Use
  Company Number: PHHO2004FR13393

PATIENT
  Sex: Female
  Weight: 92 kg

DRUGS (2)
  1. FTY 720 [Suspect]
     Dosage: CODE NOT BROKEN
     Route: 048
     Dates: start: 20041124, end: 20041126
  2. FTY 720 [Suspect]
     Indication: MULTIPLE SCLEROSIS
     Dosage: CODE NOT BROKEN
     Route: 048
     Dates: start: 20040817, end: 20041019

REACTIONS (2)
  - ASTHMA [None]
  - DISEASE PROGRESSION [None]
